FAERS Safety Report 9460044 (Version 1)
Quarter: 2013Q3

REPORT INFORMATION
  Report Type: Spontaneous
  Country: US (occurrence: US)
  Receive Date: 20130815
  Receipt Date: 20130815
  Transmission Date: 20140515
  Serious: No
  Sender: FDA-Public Use
  Company Number: US-B.I. PHARMACEUTICALS,INC./RIDGEFIELD-2013-BI-24286BP

PATIENT
  Age: 55 Year
  Sex: Female
  Weight: 41 kg

DRUGS (6)
  1. SPIRIVA [Suspect]
     Indication: CHRONIC OBSTRUCTIVE PULMONARY DISEASE
     Dosage: 18 MCG
     Route: 055
     Dates: start: 201210
  2. ZONISAMIDE [Concomitant]
     Indication: CONVULSION
     Dosage: 800 MG
     Route: 048
     Dates: start: 2000
  3. AMITRIPTYLINE [Concomitant]
     Indication: DEPRESSION
     Dosage: STRENGTH: 100 MG;
  4. PROPRANOLOL [Concomitant]
     Indication: HYPERTENSION
     Dosage: 320 MG
     Route: 048
  5. CLONIDINE HCL [Concomitant]
     Indication: HYPERTENSION
     Dosage: 4 MG
     Route: 048
  6. LISINOPRIL [Concomitant]
     Indication: HYPERTENSION
     Dosage: 40 MG
     Route: 048

REACTIONS (3)
  - Ageusia [Not Recovered/Not Resolved]
  - Tongue discolouration [Not Recovered/Not Resolved]
  - Abnormal loss of weight [Not Recovered/Not Resolved]
